FAERS Safety Report 14338659 (Version 3)
Quarter: 2018Q2

REPORT INFORMATION
  Report Type: Report from Study
  Country: US (occurrence: US)
  Receive Date: 20171229
  Receipt Date: 20180521
  Transmission Date: 20180711
  Serious: Yes (Hospitalization)
  Sender: FDA-Public Use
  Company Number: US-ACTELION-A-NJ2017-164830

PATIENT
  Age: 70 Year
  Sex: Female

DRUGS (10)
  1. OPSUMIT [Suspect]
     Active Substance: MACITENTAN
     Indication: PULMONARY ARTERIAL HYPERTENSION
     Dosage: 10 MG, QD
     Route: 048
     Dates: start: 20170808, end: 20171205
  2. DEXAMETHASON [Concomitant]
     Active Substance: DEXAMETHASONE
  3. DULOXETINE. [Concomitant]
     Active Substance: DULOXETINE
  4. PROAIR HFA [Concomitant]
     Active Substance: ALBUTEROL SULFATE
  5. STIOLTO RESPIMAT [Concomitant]
     Active Substance: OLODATEROL HYDROCHLORIDE\TIOTROPIUM BROMIDE MONOHYDRATE
  6. PANTOPRAZOLE [Concomitant]
     Active Substance: PANTOPRAZOLE
  7. GABAPENTIN. [Concomitant]
     Active Substance: GABAPENTIN
  8. MYRBETRIQ [Concomitant]
     Active Substance: MIRABEGRON
  9. PRAMIPEXOLE. [Concomitant]
     Active Substance: PRAMIPEXOLE
  10. BENZONATATE. [Concomitant]
     Active Substance: BENZONATATE

REACTIONS (3)
  - Pancreatic carcinoma [Unknown]
  - Hypotension [Unknown]
  - Pulmonary oedema [Recovered/Resolved]

NARRATIVE: CASE EVENT DATE: 20171128
